FAERS Safety Report 4565159-4 (Version None)
Quarter: 2005Q1

REPORT INFORMATION
  Report Type: 
  Country: None (occurrence: None)
  Receive Date: 20050127
  Receipt Date: 20050127
  Transmission Date: 20050727
  Serious: No
  Sender: FDA-Public Use
  Company Number: None

PATIENT
  Age: 23 Year
  Sex: Female
  Weight: 69.4003 kg

DRUGS (1)
  1. CLOZAPINE [Suspect]
     Dosage: 300 MG PO
     Route: 048

REACTIONS (2)
  - HYPOTENSION [None]
  - TACHYCARDIA [None]
